FAERS Safety Report 6396569-0 (Version None)
Quarter: 2009Q4

REPORT INFORMATION
  Report Type: 
  Country: None (occurrence: None)
  Receive Date: 20091008
  Receipt Date: 20091008
  Transmission Date: 20100525
  Serious: Yes (Hospitalization)
  Sender: FDA-Public Use
  Company Number: None

PATIENT
  Age: 53 Year
  Sex: Male

DRUGS (1)
  1. CETUXIMAB [Suspect]
     Indication: NEOPLASM MALIGNANT
     Dates: start: 20091006, end: 20091006

REACTIONS (4)
  - ANAPHYLACTIC REACTION [None]
  - ANGIOEDEMA [None]
  - CHEST DISCOMFORT [None]
  - HYPOTENSION [None]
